FAERS Safety Report 10937043 (Version 2)
Quarter: 2015Q2

REPORT INFORMATION
  Report Type: Spontaneous
  Country: US (occurrence: US)
  Receive Date: 20150321
  Receipt Date: 20150525
  Transmission Date: 20150821
  Serious: Yes (Other)
  Sender: FDA-Public Use
  Company Number: US-JNJFOC-20130215776

PATIENT
  Age: 19 Year
  Sex: Female

DRUGS (7)
  1. FOLATE [Concomitant]
     Active Substance: FOLATE SODIUM
     Indication: PREGNANCY
     Route: 065
  2. FERROUS SULFATE [Concomitant]
     Active Substance: FERROUS SULFATE\FERROUS SULFATE, DRIED
     Indication: IRON DEFICIENCY
     Route: 065
  3. DOXYCYCLINE. [Suspect]
     Active Substance: DOXYCYCLINE
     Indication: INFECTION
     Route: 065
  4. PRENATAL VITAMINS [Concomitant]
     Active Substance: VITAMINS
     Indication: PREGNANCY
     Route: 065
  5. TOPAMAX [Suspect]
     Active Substance: TOPIRAMATE
     Indication: EPILEPSY
     Route: 048
     Dates: start: 201012, end: 201108
  6. RANITIDINE [Suspect]
     Active Substance: RANITIDINE\RANITIDINE HYDROCHLORIDE
     Indication: DYSPEPSIA
     Route: 065
  7. MISOPROSTOL. [Suspect]
     Active Substance: MISOPROSTOL
     Indication: ULCER
     Route: 065

REACTIONS (3)
  - Seizure [Recovered/Resolved]
  - Exposure during pregnancy [Recovered/Resolved]
  - Emotional disorder [Unknown]

NARRATIVE: CASE EVENT DATE: 20111127
